FAERS Safety Report 4713682-1 (Version None)
Quarter: 2005Q3

REPORT INFORMATION
  Report Type: 
  Country: None (occurrence: None)
  Receive Date: 20050713
  Receipt Date: 20050705
  Transmission Date: 20060218
  Serious: Yes (Other)
  Sender: FDA-Public Use
  Company Number: WAES 0507USA00394

PATIENT
  Sex: 0

DRUGS (2)
  1. TIMOPTIC [Suspect]
     Indication: OCULAR HYPERTENSION
     Dosage: OPHT
     Route: 047
     Dates: start: 19941121, end: 20050401
  2. XALATAN [Concomitant]

REACTIONS (1)
  - PULMONARY FIBROSIS [None]
